FAERS Safety Report 16586176 (Version 1)
Quarter: 2019Q3

REPORT INFORMATION
  Report Type: Spontaneous
  Country: US (occurrence: US)
  Receive Date: 20190717
  Receipt Date: 20190717
  Transmission Date: 20191004
  Serious: Yes (Other)
  Sender: FDA-Public Use
  Company Number: US-ELI_LILLY_AND_COMPANY-US201907006452

PATIENT
  Sex: Female

DRUGS (1)
  1. HUMALOG [Suspect]
     Active Substance: INSULIN LISPRO
     Indication: TYPE 2 DIABETES MELLITUS
     Dosage: UNK UNK, PRN (3 U MORINING AND EVENING, 8 U NOC
     Route: 065
     Dates: start: 1999

REACTIONS (2)
  - Cerebrovascular accident [Unknown]
  - Arteritis [Unknown]

NARRATIVE: CASE EVENT DATE: 2014
